FAERS Safety Report 7611107-X (Version None)
Quarter: 2011Q3

REPORT INFORMATION
  Report Type: 
  Country: None (occurrence: None)
  Receive Date: 20110707
  Receipt Date: 20110606
  Transmission Date: 20111222
  Serious: Yes (Hospitalization, Other)
  Sender: FDA-Public Use
  Company Number: ENT 2011-0073

PATIENT
  Age: 53 Year
  Sex: Female

DRUGS (66)
  1. STALEVO 100 [Suspect]
     Dosage: SEE IMAGE
     Route: 048
     Dates: start: 20090725
  2. STALEVO 100 [Suspect]
     Dosage: SEE IMAGE
     Route: 048
     Dates: start: 20091102
  3. STALEVO 100 [Suspect]
     Dosage: SEE IMAGE
     Route: 048
     Dates: start: 20091019
  4. STALEVO 100 [Suspect]
     Dosage: SEE IMAGE
     Route: 048
     Dates: start: 20080304
  5. STALEVO 100 [Suspect]
     Dosage: SEE IMAGE
     Route: 048
     Dates: start: 20080530
  6. STALEVO 100 [Suspect]
     Dosage: SEE IMAGE
     Route: 048
     Dates: start: 20090818
  7. STALEVO 100 [Suspect]
     Dosage: SEE IMAGE
     Route: 048
     Dates: start: 20101101
  8. STALEVO 100 [Suspect]
     Dosage: SEE IMAGE
     Route: 048
     Dates: start: 20090415
  9. STALEVO 100 [Suspect]
     Dosage: SEE IMAGE
     Route: 048
     Dates: start: 20091219
  10. STALEVO 100 [Suspect]
     Dosage: SEE IMAGE
     Route: 048
     Dates: start: 20100302
  11. CEFUROXIME [Concomitant]
  12. ACETAMINOPHEN [Concomitant]
  13. ELUDRIL [Concomitant]
  14. MODOPAR (LEVODOPA) [Suspect]
     Indication: PARKINSON'S DISEASE
     Dosage: SEE IMAGE
     Route: 048
     Dates: start: 20091102
  15. MODOPAR (LEVODOPA) [Suspect]
     Indication: PARKINSON'S DISEASE
     Dosage: SEE IMAGE
     Route: 048
     Dates: start: 20070109
  16. MODOPAR (LEVODOPA) [Suspect]
     Indication: PARKINSON'S DISEASE
     Dosage: SEE IMAGE
     Route: 048
     Dates: start: 20080530
  17. MODOPAR (LEVODOPA) [Suspect]
     Indication: PARKINSON'S DISEASE
     Dosage: SEE IMAGE
     Route: 048
     Dates: start: 20070510
  18. MODOPAR (LEVODOPA) [Suspect]
     Indication: PARKINSON'S DISEASE
     Dosage: SEE IMAGE
     Route: 048
     Dates: start: 20081029
  19. MODOPAR (LEVODOPA) [Suspect]
     Indication: PARKINSON'S DISEASE
     Dosage: SEE IMAGE
     Route: 048
     Dates: start: 20090927
  20. MODOPAR (LEVODOPA) [Suspect]
     Indication: PARKINSON'S DISEASE
     Dosage: SEE IMAGE
     Route: 048
     Dates: start: 20091102
  21. MODOPAR (LEVODOPA) [Suspect]
     Indication: PARKINSON'S DISEASE
     Dosage: SEE IMAGE
     Route: 048
     Dates: start: 20100725
  22. MODOPAR (LEVODOPA) [Suspect]
     Indication: PARKINSON'S DISEASE
     Dosage: SEE IMAGE
     Route: 048
     Dates: start: 20090917
  23. MODOPAR (LEVODOPA) [Suspect]
     Indication: PARKINSON'S DISEASE
     Dosage: SEE IMAGE
     Route: 048
     Dates: start: 20070830
  24. MODOPAR (LEVODOPA) [Suspect]
     Indication: PARKINSON'S DISEASE
     Dosage: SEE IMAGE
     Route: 048
     Dates: start: 20080304
  25. MODOPAR (LEVODOPA) [Suspect]
     Indication: PARKINSON'S DISEASE
     Dosage: SEE IMAGE
     Route: 048
     Dates: start: 20090505
  26. MODOPAR (LEVODOPA) [Suspect]
     Indication: PARKINSON'S DISEASE
     Dosage: SEE IMAGE
     Route: 048
     Dates: start: 20080304
  27. MODOPAR (LEVODOPA) [Suspect]
     Indication: PARKINSON'S DISEASE
     Dosage: SEE IMAGE
     Route: 048
     Dates: start: 20090406
  28. MODOPAR (LEVODOPA) [Suspect]
     Indication: PARKINSON'S DISEASE
     Dosage: SEE IMAGE
     Route: 048
     Dates: start: 20100727
  29. MODOPAR (LEVODOPA) [Suspect]
     Indication: PARKINSON'S DISEASE
     Dosage: SEE IMAGE
     Route: 048
     Dates: start: 20090818
  30. MODOPAR (LEVODOPA) [Suspect]
     Indication: PARKINSON'S DISEASE
     Dosage: SEE IMAGE
     Route: 048
     Dates: start: 20080206
  31. MODOPAR (LEVODOPA) [Suspect]
     Indication: PARKINSON'S DISEASE
     Dosage: SEE IMAGE
     Route: 048
     Dates: start: 20090725
  32. MODOPAR (LEVODOPA) [Suspect]
     Indication: PARKINSON'S DISEASE
     Dosage: SEE IMAGE
     Route: 048
     Dates: start: 20071205
  33. MODOPAR (LEVODOPA) [Suspect]
     Indication: PARKINSON'S DISEASE
     Dosage: SEE IMAGE
     Route: 048
     Dates: start: 20080625
  34. MODOPAR (LEVODOPA) [Suspect]
     Indication: PARKINSON'S DISEASE
     Dosage: SEE IMAGE
     Route: 048
     Dates: start: 20090430
  35. MODOPAR (LEVODOPA) [Suspect]
     Indication: PARKINSON'S DISEASE
     Dosage: SEE IMAGE
     Route: 048
     Dates: start: 20090818
  36. MODOPAR (LEVODOPA) [Suspect]
     Indication: PARKINSON'S DISEASE
     Dosage: SEE IMAGE
     Route: 048
     Dates: start: 20080530
  37. MODOPAR (LEVODOPA) [Suspect]
     Indication: PARKINSON'S DISEASE
     Dosage: SEE IMAGE
     Route: 048
     Dates: start: 20080530
  38. MODOPAR (LEVODOPA) [Suspect]
     Indication: PARKINSON'S DISEASE
     Dosage: SEE IMAGE
     Route: 048
     Dates: start: 20080915
  39. MODOPAR (LEVODOPA) [Suspect]
     Indication: PARKINSON'S DISEASE
     Dosage: SEE IMAGE
     Route: 048
     Dates: start: 20090602
  40. MODOPAR (LEVODOPA) [Suspect]
     Indication: PARKINSON'S DISEASE
     Dosage: SEE IMAGE
     Route: 048
     Dates: start: 20100302
  41. MODOPAR (LEVODOPA) [Suspect]
     Indication: PARKINSON'S DISEASE
     Dosage: SEE IMAGE
     Route: 048
     Dates: start: 19950101
  42. MODOPAR (LEVODOPA) [Suspect]
     Indication: PARKINSON'S DISEASE
     Dosage: SEE IMAGE
     Route: 048
     Dates: start: 20060622
  43. MODOPAR (LEVODOPA) [Suspect]
     Indication: PARKINSON'S DISEASE
     Dosage: SEE IMAGE
     Route: 048
     Dates: start: 20090302
  44. EFFEXOR [Concomitant]
  45. LOXAPINE HCL [Concomitant]
  46. ATARAX [Concomitant]
  47. XANAX [Concomitant]
  48. ACETAMINOPHEN AND TRAMADOL HCL [Concomitant]
  49. NECYRANE [Concomitant]
  50. KETOCONAZOLE [Concomitant]
  51. PRAMIPEXOLE DIHYCHLLORIDE [Suspect]
     Dosage: 0.7 MG AT 1 TABLET 3 TIMES PER DAY
     Dates: start: 20060622
  52. ATHYMIL [Concomitant]
  53. LYSOPAINE [Concomitant]
  54. LORAZEPAM [Concomitant]
  55. PERGOLIDE MESYLATE [Suspect]
     Dates: start: 20030201
  56. IMOVANE [Concomitant]
  57. ECONAZOLE NITRATE [Concomitant]
  58. PRAZEPAM [Concomitant]
  59. IBUPROFEN [Concomitant]
  60. COMTAN [Suspect]
     Indication: PARKINSON'S DISEASE
     Dosage: SEE IMAGE
     Route: 048
     Dates: start: 20050119, end: 20050301
  61. COMTAN [Suspect]
     Indication: PARKINSON'S DISEASE
     Dosage: SEE IMAGE
     Route: 048
     Dates: start: 20071205
  62. COMTAN [Suspect]
     Indication: PARKINSON'S DISEASE
     Dosage: SEE IMAGE
     Route: 048
     Dates: start: 20070830
  63. COMTAN [Suspect]
     Indication: PARKINSON'S DISEASE
     Dosage: SEE IMAGE
     Route: 048
     Dates: start: 20080105
  64. COMTAN [Suspect]
     Indication: PARKINSON'S DISEASE
     Dosage: SEE IMAGE
     Route: 048
     Dates: start: 20060629
  65. CARBOCISTEINE [Concomitant]
  66. DEPAKOTE [Concomitant]

REACTIONS (25)
  - RED BLOOD CELL SEDIMENTATION RATE INCREASED [None]
  - PSYCHOMOTOR HYPERACTIVITY [None]
  - SUICIDE ATTEMPT [None]
  - OBSESSIVE-COMPULSIVE DISORDER [None]
  - ABNORMAL BEHAVIOUR [None]
  - C-REACTIVE PROTEIN INCREASED [None]
  - CHEST PAIN [None]
  - ASTHENIA [None]
  - INTENTIONAL DRUG MISUSE [None]
  - DRUG EFFECT DECREASED [None]
  - MUSCULOSKELETAL PAIN [None]
  - CHROMATURIA [None]
  - AKINESIA [None]
  - THEFT [None]
  - OVERDOSE [None]
  - HYPERSEXUALITY [None]
  - COMPULSIVE SHOPPING [None]
  - DYSPNOEA [None]
  - BALANCE DISORDER [None]
  - DEPRESSION [None]
  - AMIMIA [None]
  - NAUSEA [None]
  - ANXIETY [None]
  - WEIGHT INCREASED [None]
  - FALL [None]
